FAERS Safety Report 25264797 (Version 1)
Quarter: 2025Q2

REPORT INFORMATION
  Report Type: Spontaneous
  Country: US (occurrence: None)
  Receive Date: 20250502
  Receipt Date: 20250502
  Transmission Date: 20250716
  Serious: Yes (Hospitalization)
  Sender: FDA-CTU
  Company Number: None

PATIENT
  Age: 83 Year
  Sex: Female
  Weight: 63.8 kg

DRUGS (1)
  1. LEVOFLOXACIN [Suspect]
     Active Substance: LEVOFLOXACIN
     Indication: Pneumonia
     Dosage: FREQUENCY : DAILY;?
     Route: 048
     Dates: start: 20250406, end: 20250422

REACTIONS (5)
  - Deep vein thrombosis [None]
  - Tendon rupture [None]
  - Dyspnoea [None]
  - Synovial rupture [None]
  - Tendon rupture [None]

NARRATIVE: CASE EVENT DATE: 20250417
